FAERS Safety Report 15462374 (Version 5)
Quarter: 2019Q2

REPORT INFORMATION
  Report Type: Spontaneous
  Country: US (occurrence: US)
  Receive Date: 20181004
  Receipt Date: 20190410
  Transmission Date: 20190711
  Serious: No
  Sender: FDA-Public Use
  Company Number: US-BIOGEN-2018BI00639479

PATIENT
  Sex: Male

DRUGS (5)
  1. VITAMIN B-6 [Concomitant]
     Active Substance: PYRIDOXINE
  2. TECFIDERA [Suspect]
     Active Substance: DIMETHYL FUMARATE
     Indication: MULTIPLE SCLEROSIS
     Dosage: TAKE 1 CAPSULE BY?MOUTH TWICE A DAY
     Route: 050
  3. VITAMIN B12 [Concomitant]
     Active Substance: CYANOCOBALAMIN
  4. GABAPENTIN. [Concomitant]
     Active Substance: GABAPENTIN
  5. VITAMIN D3 [Concomitant]
     Active Substance: CHOLECALCIFEROL

REACTIONS (10)
  - Neuralgia [Recovered/Resolved with Sequelae]
  - Multiple sclerosis relapse [Unknown]
  - Sleep apnoea syndrome [Not Recovered/Not Resolved]
  - Hypersomnia [Unknown]
  - Flushing [Unknown]
  - Depression [Not Recovered/Not Resolved]
  - Photosensitivity reaction [Unknown]
  - Diarrhoea [Unknown]
  - Product dose omission [Unknown]
  - Fatigue [Not Recovered/Not Resolved]
